FAERS Safety Report 5314213-8 (Version None)
Quarter: 2007Q2

REPORT INFORMATION
  Report Type: 
  Country: None (occurrence: None)
  Receive Date: 20070426
  Receipt Date: 20070418
  Transmission Date: 20071010
  Serious: Yes (Death, Hospitalization)
  Sender: FDA-Public Use
  Company Number: 2007AL001616

PATIENT
  Age: 85 Year
  Sex: Female

DRUGS (13)
  1. METFORMIN HYDROCHLORIDE [Suspect]
     Indication: DIABETES MELLITUS NON-INSULIN-DEPENDENT
     Dosage: 1.5 GR; QD; PO
     Route: 048
     Dates: end: 20070209
  2. TOLTERODINE [Concomitant]
  3. METOPROLOL SUCCINATE [Concomitant]
  4. CITALOPRAM HYDROBROMIDE [Concomitant]
  5. ZOLPIDEM [Concomitant]
  6. VERAPAMIL [Concomitant]
  7. WARFARIN SODIUM [Concomitant]
  8. FUROSEMIDE [Concomitant]
  9. ALPRAZOLAM [Concomitant]
  10. GLIBENCLAMIDE [Concomitant]
  11. IPRATROPIUM BROMIDE [Concomitant]
  12. ESTRADIOL [Concomitant]
  13. ENALAPRIL [Concomitant]

REACTIONS (12)
  - ABDOMINAL PAIN [None]
  - BLOOD GLUCOSE INCREASED [None]
  - BLOOD POTASSIUM INCREASED [None]
  - BRADYCARDIA [None]
  - HEPATIC FAILURE [None]
  - HYPOTENSION [None]
  - INTERNATIONAL NORMALISED RATIO INCREASED [None]
  - LACTIC ACIDOSIS [None]
  - PAROTITIS [None]
  - RENAL FAILURE [None]
  - SEPSIS [None]
  - VOMITING [None]
